FAERS Safety Report 15098509 (Version 2)
Quarter: 2018Q3

REPORT INFORMATION
  Report Type: Spontaneous
  Country: US (occurrence: US)
  Receive Date: 20180702
  Receipt Date: 20180731
  Transmission Date: 20181010
  Serious: Yes (Other)
  Sender: FDA-Public Use
  Company Number: US-GILEAD-2018-0347083

PATIENT
  Age: 56 Year
  Sex: Male

DRUGS (6)
  1. RANITIDINE. [Concomitant]
     Active Substance: RANITIDINE
  2. HCTZ [Suspect]
     Active Substance: HYDROCHLOROTHIAZIDE
     Indication: PRODUCT USED FOR UNKNOWN INDICATION
     Route: 065
  3. CIALIS [Concomitant]
     Active Substance: TADALAFIL
  4. LISINOPRIL. [Concomitant]
     Active Substance: LISINOPRIL
  5. OTEZLA [Concomitant]
     Active Substance: APREMILAST
  6. EPCLUSA [Suspect]
     Active Substance: SOFOSBUVIR\VELPATASVIR
     Indication: PRODUCT USED FOR UNKNOWN INDICATION
     Dosage: UNK
     Route: 065

REACTIONS (8)
  - Blood glucose increased [Unknown]
  - Pain in extremity [Unknown]
  - Muscle rupture [Unknown]
  - Glomerular filtration rate decreased [Unknown]
  - Glomerular filtration rate increased [Unknown]
  - Blood test abnormal [Unknown]
  - Blood urea increased [Unknown]
  - Blood creatinine increased [Unknown]

NARRATIVE: CASE EVENT DATE: 20180618
